FAERS Safety Report 5147266-0 (Version None)
Quarter: 2006Q4

REPORT INFORMATION
  Report Type: 
  Country: None (occurrence: None)
  Receive Date: 20061103
  Receipt Date: 20061027
  Transmission Date: 20070319
  Serious: Yes (Hospitalization, Other)
  Sender: FDA-Public Use
  Company Number: 2006SP003851

PATIENT
  Age: 52 Year
  Sex: Male

DRUGS (6)
  1. LUNESTA [Suspect]
     Indication: INSOMNIA
     Dosage: SEE IMAGE
     Route: 048
  2. BENICAR [Concomitant]
  3. WELLBUTRIN [Concomitant]
  4. ZOLOFT [Concomitant]
  5. VYTORIN [Concomitant]
  6. AMLODIPINE [Concomitant]

REACTIONS (23)
  - ALANINE AMINOTRANSFERASE INCREASED [None]
  - ARTERIOSPASM CORONARY [None]
  - ASPARTATE AMINOTRANSFERASE INCREASED [None]
  - CARDIAC ARREST [None]
  - CONJUNCTIVAL HYPERAEMIA [None]
  - CORONARY ARTERY OCCLUSION [None]
  - CYANOSIS [None]
  - DEPRESSION [None]
  - DRUG SCREEN POSITIVE [None]
  - ELECTROCARDIOGRAM ST SEGMENT ELEVATION [None]
  - ELECTROCARDIOGRAM T WAVE INVERSION [None]
  - GAMMA-GLUTAMYLTRANSFERASE INCREASED [None]
  - HEADACHE [None]
  - INSOMNIA [None]
  - MUSCLE RIGIDITY [None]
  - NAUSEA [None]
  - PAIN [None]
  - POISONING [None]
  - SINUS TACHYCARDIA [None]
  - TREMOR [None]
  - TROPONIN I INCREASED [None]
  - VENTRICULAR FIBRILLATION [None]
  - VOMITING [None]
